FAERS Safety Report 4913657-3 (Version None)
Quarter: 2006Q1

REPORT INFORMATION
  Report Type: 
  Country: None (occurrence: None)
  Receive Date: 20060210
  Receipt Date: 20060131
  Transmission Date: 20060701
  Serious: Yes (Hospitalization)
  Sender: FDA-Public Use
  Company Number: 2006015254

PATIENT
  Age: 67 Year
  Sex: Male

DRUGS (6)
  1. ALDACTONE [Suspect]
     Indication: OEDEMA
     Dosage: 200 MG (100 MG, BID INTERVAL: EVERYDAY), ORAL
     Route: 048
     Dates: start: 20030101
  2. FUROSEMIDE [Suspect]
     Indication: OEDEMA
     Dosage: SEE IMAGE
     Route: 048
     Dates: start: 20050501, end: 20051127
  3. FUROSEMIDE [Suspect]
     Indication: OEDEMA
     Dosage: SEE IMAGE
     Route: 048
     Dates: start: 20051127, end: 20051217
  4. ATENOLOL [Concomitant]
  5. NITROGLYCERIN [Concomitant]
  6. AMLODIPINE [Concomitant]

REACTIONS (2)
  - DRUG INTERACTION [None]
  - ENCEPHALOPATHY [None]
